FAERS Safety Report 15076666 (Version 3)
Quarter: 2019Q1

REPORT INFORMATION
  Report Type: Spontaneous
  Country: US (occurrence: US)
  Receive Date: 20180627
  Receipt Date: 20190128
  Transmission Date: 20190417
  Serious: Yes (Other)
  Sender: FDA-Public Use
  Company Number: US-PFIZER INC-2018252652

PATIENT
  Age: 52 Year
  Sex: Male
  Weight: 93 kg

DRUGS (3)
  1. SOMAVERT [Suspect]
     Active Substance: PEGVISOMANT
     Indication: PITUITARY TUMOUR BENIGN
     Dosage: 20 MG, DAILY
     Dates: start: 20170707
  2. SOMAVERT [Suspect]
     Active Substance: PEGVISOMANT
     Indication: ACROMEGALY
     Dosage: 20 MG, 3X/WEEK
     Route: 058
     Dates: start: 201806
  3. SOMAVERT [Suspect]
     Active Substance: PEGVISOMANT
     Indication: INSULIN-LIKE GROWTH FACTOR INCREASED
     Dosage: 20 MG, 3X/WEEK

REACTIONS (10)
  - Insulin-like growth factor increased [Unknown]
  - Product use issue [Unknown]
  - Low density lipoprotein increased [Unknown]
  - Vitamin D decreased [Unknown]
  - Injection site rash [Unknown]
  - Pleurisy [Recovered/Resolved]
  - Blood cholesterol increased [Unknown]
  - Upper respiratory tract infection [Recovered/Resolved]
  - Blood luteinising hormone increased [Unknown]
  - Flatulence [Unknown]

NARRATIVE: CASE EVENT DATE: 20180304
